FAERS Safety Report 17331416 (Version 1)
Quarter: 2020Q1

REPORT INFORMATION
  Report Type: Spontaneous
  Country: US (occurrence: US)
  Receive Date: 20200127
  Receipt Date: 20200127
  Transmission Date: 20200409
  Serious: No
  Sender: FDA-Public Use
  Company Number: None

PATIENT
  Age: 39 Year
  Sex: Female
  Weight: 95.85 kg

DRUGS (11)
  1. AIMOVIG [Suspect]
     Active Substance: ERENUMAB-AOOE
     Indication: MIGRAINE
     Dosage: ?          OTHER FREQUENCY:ONCE A MONTH;?
     Route: 030
     Dates: start: 20190101, end: 20200126
  2. LYVOTHYROXINE [Concomitant]
  3. PANTAPROZALOE [Concomitant]
  4. CALCIUM [Concomitant]
     Active Substance: CALCIUM
  5. TEMAZEPAM. [Concomitant]
     Active Substance: TEMAZEPAM
  6. MULTIVITAMIN [Concomitant]
     Active Substance: VITAMINS
  7. IRON [Concomitant]
     Active Substance: IRON
  8. ALBUTEROL INHALER [Concomitant]
     Active Substance: ALBUTEROL
  9. AIMITRIPTILINE [Concomitant]
  10. TYLENOL [Concomitant]
     Active Substance: ACETAMINOPHEN
  11. MAGNESIUM SULFATE. [Concomitant]
     Active Substance: MAGNESIUM SULFATE

REACTIONS (6)
  - Migraine [None]
  - Acne [None]
  - Abnormal behaviour [None]
  - Constipation [None]
  - Weight increased [None]
  - Rash [None]

NARRATIVE: CASE EVENT DATE: 20200126
